FAERS Safety Report 9009317 (Version 7)
Quarter: 2014Q2

REPORT INFORMATION
  Report Type: Report from Study
  Country: US (occurrence: US)
  Receive Date: 20130111
  Receipt Date: 20140619
  Transmission Date: 20141212
  Serious: Yes (Hospitalization)
  Sender: FDA-Public Use
  Company Number: US-US-EMD SERONO, INC.-7186008

PATIENT
  Age: 43 Year
  Sex: Male

DRUGS (6)
  1. REBIF [Suspect]
     Indication: MULTIPLE SCLEROSIS
     Route: 058
     Dates: start: 20120816, end: 20130104
  2. REBIF [Suspect]
     Route: 058
  3. METFORMIN [Concomitant]
     Indication: TYPE 2 DIABETES MELLITUS
  4. LISINOPRIL [Concomitant]
     Indication: HYPERTENSION
  5. AMLODIPINE [Concomitant]
     Indication: HYPERTENSION
  6. HYDROCHLOROTHIAZIDE [Concomitant]
     Indication: HYPERTENSION

REACTIONS (11)
  - Sepsis [Unknown]
  - Pneumonia [Unknown]
  - Bronchitis [Unknown]
  - Multiple sclerosis relapse [Recovering/Resolving]
  - Hypertension [Unknown]
  - Hypotension [Unknown]
  - Anxiety [Unknown]
  - Laceration [Not Recovered/Not Resolved]
  - Blood glucose decreased [Unknown]
  - Eye irritation [Unknown]
  - Pain [Recovering/Resolving]
